FAERS Safety Report 14134633 (Version 2)
Quarter: 2017Q4

REPORT INFORMATION
  Report Type: Report from Study
  Country: FR (occurrence: FR)
  Receive Date: 20171027
  Receipt Date: 20171109
  Transmission Date: 20180321
  Serious: Yes (Hospitalization)
  Sender: FDA-Public Use
  Company Number: FR-JNJFOC-20160919892

PATIENT
  Age: 63 Year
  Sex: Female
  Weight: 78 kg

DRUGS (16)
  1. SODIUM BICARBONATE. [Concomitant]
     Active Substance: SODIUM BICARBONATE
     Route: 048
  2. METHOTREXATE. [Concomitant]
     Active Substance: METHOTREXATE
     Route: 048
     Dates: start: 201402, end: 201411
  3. BETA ALANINE [Concomitant]
     Route: 048
  4. DESLORATADINE. [Concomitant]
     Active Substance: DESLORATADINE
     Route: 048
  5. PARACETAMOL [Concomitant]
     Active Substance: ACETAMINOPHEN
     Route: 065
  6. REMICADE [Suspect]
     Active Substance: INFLIXIMAB
     Indication: PSORIASIS
     Route: 042
     Dates: start: 20141124, end: 20160825
  7. REMICADE [Suspect]
     Active Substance: INFLIXIMAB
     Indication: PSORIASIS
     Route: 042
     Dates: start: 20141105
  8. TRAMADOL HYDROCHLORIDE. [Concomitant]
     Active Substance: TRAMADOL HYDROCHLORIDE
     Route: 048
  9. CLOBETASOL PROPIONATE. [Concomitant]
     Active Substance: CLOBETASOL PROPIONATE
     Route: 065
  10. REMICADE [Suspect]
     Active Substance: INFLIXIMAB
     Indication: PSORIASIS
     Route: 042
     Dates: end: 20160904
  11. IRBESARTAN. [Concomitant]
     Active Substance: IRBESARTAN
     Route: 048
  12. BIFONAZOLE [Concomitant]
     Active Substance: BIFONAZOLE
     Route: 065
  13. CALCIUM [Concomitant]
     Active Substance: CALCIUM
     Route: 048
  14. CALCIUM CARBONATE. [Concomitant]
     Active Substance: CALCIUM CARBONATE
     Route: 065
  15. METFORMINE HCL [Concomitant]
     Active Substance: METFORMIN HYDROCHLORIDE
     Route: 048
  16. ACITRETINE [Concomitant]
     Active Substance: ACITRETIN
     Route: 048
     Dates: start: 20160908, end: 20170602

REACTIONS (8)
  - Helicobacter infection [Recovering/Resolving]
  - Tympanoplasty [Recovered/Resolved]
  - Tympanic membrane perforation [Recovered/Resolved]
  - Drug ineffective [Unknown]
  - Pustular psoriasis [Recovering/Resolving]
  - Ear infection [Recovered/Resolved]
  - Mastoidectomy [Recovered/Resolved]
  - Fungal infection [Unknown]

NARRATIVE: CASE EVENT DATE: 20150402
